FAERS Safety Report 11993708 (Version 1)
Quarter: 2016Q1

REPORT INFORMATION
  Report Type: Spontaneous
  Country: US (occurrence: None)
  Receive Date: 20160202
  Receipt Date: 20160202
  Transmission Date: 20160526
  Serious: No
  Sender: FDA-Public Use
  Company Number: None

PATIENT
  Age: 37 Year
  Sex: Female
  Weight: 91.17 kg

DRUGS (1)
  1. SUMATRIPTAN 100MG [Suspect]
     Active Substance: SUMATRIPTAN
     Indication: MIGRAINE
     Dosage: 100 MG PRN. MIGRAINES ORAL TABLETS
     Route: 048
     Dates: start: 20130909, end: 20150707

REACTIONS (3)
  - Fatigue [None]
  - Drug ineffective [None]
  - Nausea [None]
